FAERS Safety Report 12613403 (Version 2)
Quarter: 2016Q4

REPORT INFORMATION
  Report Type: Spontaneous
  Country: US (occurrence: US)
  Receive Date: 20160802
  Receipt Date: 20161103
  Transmission Date: 20170207
  Serious: No
  Sender: FDA-Public Use
  Company Number: US-009507513-1607USA012357

PATIENT
  Age: 24 Year
  Sex: Female
  Weight: 135.1 kg

DRUGS (2)
  1. NEXPLANON [Suspect]
     Active Substance: ETONOGESTREL
     Dosage: 68 MG, FOR EVERY 3 YEARS
     Route: 059
     Dates: start: 20160726
  2. NEXPLANON [Suspect]
     Active Substance: ETONOGESTREL
     Indication: CONTRACEPTION
     Dosage: 68 MG, FOR EVERY 3 YEARS
     Route: 059
     Dates: start: 20160726, end: 20160726

REACTIONS (4)
  - Device expulsion [Recovered/Resolved]
  - Medical device discomfort [Unknown]
  - Product quality issue [Unknown]
  - Complication of device insertion [Recovered/Resolved]

NARRATIVE: CASE EVENT DATE: 20160726
